FAERS Safety Report 24956049 (Version 1)
Quarter: 2025Q1

REPORT INFORMATION
  Report Type: Spontaneous
  Country: US (occurrence: US)
  Receive Date: 20250211
  Receipt Date: 20250211
  Transmission Date: 20250409
  Serious: No
  Sender: DR REDDYS
  Company Number: None

PATIENT
  Age: 5 Year
  Sex: Male

DRUGS (3)
  1. OLANZAPINE [Suspect]
     Active Substance: OLANZAPINE
     Indication: Behaviour disorder
  2. OLANZAPINE [Suspect]
     Active Substance: OLANZAPINE
     Indication: Aggression
  3. OLANZAPINE [Suspect]
     Active Substance: OLANZAPINE
     Indication: Anxiety

REACTIONS (1)
  - Extrapyramidal disorder [Unknown]
